FAERS Safety Report 6752618-9 (Version None)
Quarter: 2010Q2

REPORT INFORMATION
  Report Type: 
  Country: None (occurrence: None)
  Receive Date: 20100601
  Receipt Date: 20100601
  Transmission Date: 20101027
  Serious: No
  Sender: FDA-Public Use
  Company Number: None

PATIENT
  Age: 50 Year
  Sex: Male

DRUGS (2)
  1. OMNIPAQUE 300 [Suspect]
     Indication: COMPUTERISED TOMOGRAM
     Dosage: 90 CC
     Dates: start: 20100324, end: 20100324
  2. METFORMIN HCL [Concomitant]

REACTIONS (3)
  - GINGIVAL PRURITUS [None]
  - ORAL PRURITUS [None]
  - SWOLLEN TONGUE [None]
